FAERS Safety Report 5997789-7 (Version None)
Quarter: 2008Q4

REPORT INFORMATION
  Report Type: 
  Country: None (occurrence: None)
  Receive Date: 20081212
  Receipt Date: 20081124
  Transmission Date: 20090506
  Serious: No
  Sender: FDA-Public Use
  Company Number: US-ABBOTT-08P-163-0489234-00

PATIENT
  Sex: Female
  Weight: 74.002 kg

DRUGS (1)
  1. HUMIRA [Suspect]
     Indication: RHEUMATOID ARTHRITIS
     Dates: start: 20071001

REACTIONS (4)
  - ABDOMINAL DISTENSION [None]
  - BOWEL MOVEMENT IRREGULARITY [None]
  - FLATULENCE [None]
  - WEIGHT INCREASED [None]
